FAERS Safety Report 11826642 (Version 2)
Quarter: 2016Q1

REPORT INFORMATION
  Report Type: Spontaneous
  Country: IT (occurrence: IT)
  Receive Date: 20151211
  Receipt Date: 20160208
  Transmission Date: 20160525
  Serious: Yes (Hospitalization, Other)
  Sender: FDA-Public Use
  Company Number: IT-SA-2015SA202451

PATIENT
  Age: 4 Year
  Sex: Male

DRUGS (6)
  1. FUROSEMIDE. [Suspect]
     Active Substance: FUROSEMIDE
     Route: 065
  2. GLIBENCLAMIDE [Suspect]
     Active Substance: GLYBURIDE
     Route: 065
  3. INSULIN, REGULAR [Suspect]
     Active Substance: INSULIN NOS
     Route: 042
  4. VALPROATE SODIUM. [Concomitant]
     Active Substance: VALPROATE SODIUM
     Dosage: UP TO 60 MG/KG
  5. PROGESTERONE. [Suspect]
     Active Substance: PROGESTERONE
     Route: 065
  6. INSULIN, REGULAR [Suspect]
     Active Substance: INSULIN NOS
     Route: 058

REACTIONS (12)
  - Base excess increased [Recovered/Resolved]
  - Hypoglycaemia [Recovered/Resolved]
  - Hirsutism [Recovered/Resolved]
  - Metabolic alkalosis [Recovered/Resolved]
  - Hyperglycaemia [Recovered/Resolved]
  - Sepsis [Recovered/Resolved]
  - Intentional product misuse [Unknown]
  - Blood pH increased [Recovered/Resolved]
  - Hypokalaemia [Recovered/Resolved]
  - Developmental delay [Unknown]
  - Nephrocalcinosis [Unknown]
  - Blood bicarbonate increased [Recovered/Resolved]
